FAERS Safety Report 13784378 (Version 1)
Quarter: 2017Q3

REPORT INFORMATION
  Report Type: Spontaneous
  Country: GB (occurrence: GB)
  Receive Date: 20170724
  Receipt Date: 20170724
  Transmission Date: 20171127
  Serious: Yes (Hospitalization)
  Sender: FDA-Public Use
  Company Number: GB-009507513-1707GBR009272

PATIENT
  Age: 82 Year
  Sex: Female

DRUGS (15)
  1. ACYCLOVIR. [Concomitant]
     Active Substance: ACYCLOVIR
     Indication: PRODUCT USED FOR UNKNOWN INDICATION
     Dosage: 800 MG (400 MG, 2 IN 1 D)
     Route: 048
  2. NITROFURANTOIN. [Concomitant]
     Active Substance: NITROFURANTOIN
     Indication: PRODUCT USED FOR UNKNOWN INDICATION
     Dosage: 50 MG (50 MG, 1 IN 1 D)
     Route: 048
  3. REVLIMID [Suspect]
     Active Substance: LENALIDOMIDE
     Dosage: MOST RECENT DOSE (25 MG)
     Route: 048
     Dates: start: 20170122, end: 20170122
  4. REVLIMID [Suspect]
     Active Substance: LENALIDOMIDE
     Indication: PLASMA CELL MYELOMA
     Dosage: ON DAY 1-21 OF A CYCLE (25 MG, 1 D)
     Route: 048
     Dates: start: 20140909
  5. REVLIMID [Suspect]
     Active Substance: LENALIDOMIDE
     Dosage: 10 MG (10 MG, 1 D)
     Route: 048
     Dates: start: 20141104
  6. TROSPI [Concomitant]
     Active Substance: TROSPIUM CHLORIDE
     Indication: PRODUCT USED FOR UNKNOWN INDICATION
     Dosage: 60 MG (60 MG, 1 IN 1 D)
     Route: 048
  7. DEXAMETHASONE. [Suspect]
     Active Substance: DEXAMETHASONE
     Indication: PLASMA CELL MYELOMA
     Dosage: DAILY, UNKNOWN (20 MG, 1 IN 1 M)
     Route: 048
     Dates: start: 20140909
  8. DARATUMUMAB [Suspect]
     Active Substance: DARATUMUMAB
     Dosage: MOST RECENT DOSE (UNKNOWN)
     Route: 041
     Dates: start: 20170113
  9. DARATUMUMAB [Suspect]
     Active Substance: DARATUMUMAB
     Dosage: DOSE INCREASED, (1280 MG, 1 IN 1M)
     Route: 041
  10. DARATUMUMAB [Suspect]
     Active Substance: DARATUMUMAB
     Dosage: UNKNOWN (860 MG)
     Route: 041
     Dates: start: 20170105
  11. NUTRITIONAL SUPPLEMENTS [Concomitant]
     Active Substance: DIETARY SUPPLEMENT
     Indication: PRODUCT USED FOR UNKNOWN INDICATION
     Dosage: UNKNOWN (UNKNOWN, 3 IN 1 D)
     Route: 048
  12. DARATUMUMAB [Suspect]
     Active Substance: DARATUMUMAB
     Indication: PLASMA CELL MYELOMA
     Dosage: UNKNOWN (860 MG, 1 IN 1 M)
     Route: 041
     Dates: start: 20140909
  13. ASPIRIN. [Concomitant]
     Active Substance: ASPIRIN
     Indication: PRODUCT USED FOR UNKNOWN INDICATION
     Dosage: 20 MG (20 MG, 1 IN 1 D)
  14. METOCLOPRAMIDE. [Concomitant]
     Active Substance: METOCLOPRAMIDE
     Indication: PRODUCT USED FOR UNKNOWN INDICATION
     Dosage: UNKNOWN (10 MG)
     Route: 048
  15. OMEPRAZOLE. [Concomitant]
     Active Substance: OMEPRAZOLE
     Indication: PRODUCT USED FOR UNKNOWN INDICATION
     Dosage: 20 MG (20 MG, 1 IN 1 D)
     Route: 048

REACTIONS (1)
  - Lower respiratory tract infection [Recovered/Resolved]

NARRATIVE: CASE EVENT DATE: 20170122
